FAERS Safety Report 25571252 (Version 1)
Quarter: 2025Q3

REPORT INFORMATION
  Report Type: Report from Study
  Country: US (occurrence: US)
  Receive Date: 20250717
  Receipt Date: 20250717
  Transmission Date: 20251021
  Serious: Yes (Hospitalization, Other)
  Sender: TAKEDA
  Company Number: US-TAKEDA-2022TUS047079

PATIENT
  Age: 83 Year
  Sex: Male
  Weight: 106 kg

DRUGS (18)
  1. HUMAN IMMUNOGLOBULIN G [Suspect]
     Active Substance: HUMAN IMMUNOGLOBULIN G
     Indication: Multifocal motor neuropathy
  2. HUMAN IMMUNOGLOBULIN G [Suspect]
     Active Substance: HUMAN IMMUNOGLOBULIN G
     Dosage: 40 GRAM, QD
  3. HUMAN IMMUNOGLOBULIN G [Suspect]
     Active Substance: HUMAN IMMUNOGLOBULIN G
  4. HUMAN IMMUNOGLOBULIN G [Suspect]
     Active Substance: HUMAN IMMUNOGLOBULIN G
     Dosage: 40 GRAM, Q6WEEKS
  5. KEYTRUDA [Suspect]
     Active Substance: PEMBROLIZUMAB
     Indication: Product used for unknown indication
  6. TOPROL XL [Concomitant]
     Active Substance: METOPROLOL SUCCINATE
  7. NORVASC [Concomitant]
     Active Substance: AMLODIPINE BESYLATE
  8. MINERALS\VITAMINS [Concomitant]
     Active Substance: MINERALS\VITAMINS
  9. PRADAXA [Concomitant]
     Active Substance: DABIGATRAN ETEXILATE MESYLATE
  10. PREDNISONE [Concomitant]
     Active Substance: PREDNISONE
  11. Omega 3 + vitamin d [Concomitant]
  12. AMLODIPINE BESYLATE [Concomitant]
     Active Substance: AMLODIPINE BESYLATE
  13. AMBIEN [Concomitant]
     Active Substance: ZOLPIDEM TARTRATE
  14. TRIAMTERENE [Concomitant]
     Active Substance: TRIAMTERENE
  15. ALEVE [Concomitant]
     Active Substance: NAPROXEN SODIUM
  16. PANTOPRAZOLE SODIUM [Concomitant]
     Active Substance: PANTOPRAZOLE SODIUM
  17. METOPROLOL SUCCINATE [Concomitant]
     Active Substance: METOPROLOL SUCCINATE
  18. MAXZIDE [Concomitant]
     Active Substance: HYDROCHLOROTHIAZIDE\TRIAMTERENE

REACTIONS (11)
  - Pneumonia [Unknown]
  - Monoplegia [Unknown]
  - Cerebrovascular accident [Unknown]
  - Arthritis [Unknown]
  - COVID-19 [Unknown]
  - Memory impairment [Unknown]
  - Product dose omission issue [Unknown]
  - Inappropriate schedule of product administration [Unknown]
  - Circumstance or information capable of leading to medication error [Unknown]
  - Speech disorder [Recovering/Resolving]
  - Anxiety [Unknown]

NARRATIVE: CASE EVENT DATE: 20250526
